FAERS Safety Report 9258942 (Version 2)
Quarter: 2013Q2

REPORT INFORMATION
  Report Type: Spontaneous
  Country: FR (occurrence: FR)
  Receive Date: 20130426
  Receipt Date: 20130524
  Transmission Date: 20140414
  Serious: Yes (Hospitalization)
  Sender: FDA-Public Use
  Company Number: FR-GLAXOSMITHKLINE-B0886407A

PATIENT
  Age: 26 Year
  Sex: Male
  Weight: 84 kg

DRUGS (2)
  1. ARIXTRA [Suspect]
     Indication: PORTAL VEIN THROMBOSIS
     Dosage: 7.5MG PER DAY
     Route: 058
     Dates: start: 20130222, end: 20130301
  2. PREVISCAN [Suspect]
     Indication: PORTAL VEIN THROMBOSIS
     Dosage: 20MG UNKNOWN
     Route: 048
     Dates: end: 20130301

REACTIONS (8)
  - Retroperitoneal haematoma [Unknown]
  - Haemarthrosis [Unknown]
  - Muscle haemorrhage [Recovered/Resolved]
  - Haematoma [Unknown]
  - Myositis [Unknown]
  - Hyporeflexia [Unknown]
  - Neuralgia [Unknown]
  - Hypoaesthesia [Unknown]
